FAERS Safety Report 6135443-1 (Version None)
Quarter: 2009Q1

REPORT INFORMATION
  Report Type: 
  Country: None (occurrence: None)
  Receive Date: 20090327
  Receipt Date: 20090319
  Transmission Date: 20090719
  Serious: Yes (Hospitalization, Congenital Anomaly)
  Sender: FDA-Public Use
  Company Number: A0680446A

PATIENT
  Sex: Female
  Weight: 3.9 kg

DRUGS (5)
  1. PAXIL [Suspect]
     Indication: DEPRESSION
     Dosage: 20MG PER DAY
     Dates: start: 20020101, end: 20061106
  2. PAROXETINE HYDROCHLORIDE [Suspect]
     Indication: DEPRESSION
     Dosage: 20MG PER DAY
     Dates: start: 20020101, end: 20060101
  3. VITAMIN TAB [Concomitant]
  4. ZYRTEC [Concomitant]
  5. METOCLOPRAMIDE [Concomitant]

REACTIONS (7)
  - ATRIAL SEPTAL DEFECT [None]
  - BICUSPID AORTIC VALVE [None]
  - BUNDLE BRANCH BLOCK RIGHT [None]
  - COARCTATION OF THE AORTA [None]
  - DRUG EXPOSURE DURING PREGNANCY [None]
  - QRS AXIS ABNORMAL [None]
  - VENTRICULAR SEPTAL DEFECT [None]
